FAERS Safety Report 12784324 (Version 1)
Quarter: 2016Q3

REPORT INFORMATION
  Report Type: Spontaneous
  Country: DE (occurrence: DE)
  Receive Date: 20160927
  Receipt Date: 20160927
  Transmission Date: 20161109
  Serious: Yes (Other)
  Sender: FDA-Public Use
  Company Number: DE-BEH-200814407

PATIENT
  Age: 34 Week
  Sex: Female
  Weight: 6.9 kg

DRUGS (4)
  1. PARACETAMOL [Concomitant]
     Active Substance: ACETAMINOPHEN
     Dosage: DAILY DOSE QUANTITY: 375, DAILY DOSE UNIT: MG
  2. MEGACILLIN [Concomitant]
     Active Substance: PENICILLIN G BENZATHINE
  3. SANDOGLOBULIN [Suspect]
     Active Substance: HUMAN IMMUNOGLOBULIN G
     Indication: KAWASAKI^S DISEASE
     Dosage: DAILY DOSE QUANTITY: 15, DAILY DOSE UNIT: G
     Route: 042
     Dates: start: 20081022, end: 20081022
  4. NUROFEN MIXTURE [Concomitant]

REACTIONS (7)
  - Chills [Recovered/Resolved]
  - Hyperpyrexia [Recovered/Resolved]
  - Tachycardia [Recovered/Resolved]
  - Anaphylactic reaction [Recovered/Resolved]
  - Bronchial obstruction [Recovered/Resolved]
  - Cyanosis central [Recovered/Resolved]
  - Incorrect drug administration rate [None]

NARRATIVE: CASE EVENT DATE: 20081022
